FAERS Safety Report 25913655 (Version 2)
Quarter: 2025Q4

REPORT INFORMATION
  Report Type: Spontaneous
  Country: EU (occurrence: EU)
  Receive Date: 20251013
  Receipt Date: 20251015
  Transmission Date: 20260118
  Serious: Yes (Other)
  Sender: PFIZER
  Company Number: EU-MLMSERVICE-20251001-PI660261-00255-1

PATIENT
  Age: 78 Year
  Sex: Male

DRUGS (6)
  1. CARBOPLATIN [Suspect]
     Active Substance: CARBOPLATIN
     Indication: Follicular thyroid cancer
     Dosage: AUC 2 ON DAYS 2, 9 AND 16 EVERY 28 DAYS, 5 CYCLES
     Dates: start: 202202, end: 2022
  2. CARBOPLATIN [Suspect]
     Active Substance: CARBOPLATIN
     Indication: Anaplastic thyroid cancer
  3. PACLITAXEL [Suspect]
     Active Substance: PACLITAXEL
     Indication: Follicular thyroid cancer
     Dosage: 80 MG/M2, CYCLIC, ON DAYS 1, 8 AND 15 EVERY 28 DAYS, 5 CYCLES
     Dates: start: 202202, end: 2022
  4. PACLITAXEL [Suspect]
     Active Substance: PACLITAXEL
     Indication: Anaplastic thyroid cancer
  5. PEMBROLIZUMAB [Concomitant]
     Active Substance: PEMBROLIZUMAB
     Indication: Follicular thyroid cancer
     Dosage: 200 MG, CYCLIC, FREQ:21 D;EVERY 21 DAYS, 5 CYCLES
     Dates: start: 202202, end: 2022
  6. PEMBROLIZUMAB [Concomitant]
     Active Substance: PEMBROLIZUMAB
     Indication: Anaplastic thyroid cancer

REACTIONS (1)
  - Haematotoxicity [Unknown]

NARRATIVE: CASE EVENT DATE: 20220101
